FAERS Safety Report 14518190 (Version 1)
Quarter: 2018Q1

REPORT INFORMATION
  Report Type: Spontaneous
  Country: US (occurrence: US)
  Receive Date: 20180212
  Receipt Date: 20180212
  Transmission Date: 20180509
  Serious: No
  Sender: FDA-Public Use
  Company Number: US-PFIZER INC-2018059733

PATIENT
  Sex: Female

DRUGS (1)
  1. CRISABOROLE [Suspect]
     Active Substance: CRISABOROLE
     Dosage: UNK

REACTIONS (2)
  - Pain of skin [Unknown]
  - Skin burning sensation [Unknown]
